FAERS Safety Report 7761104-9 (Version None)
Quarter: 2011Q3

REPORT INFORMATION
  Report Type: 
  Country: None (occurrence: None)
  Receive Date: 20110920
  Receipt Date: 20101007
  Transmission Date: 20111222
  Serious: No
  Sender: FDA-Public Use
  Company Number: US-BAYER-201039029NA

PATIENT
  Age: 49 Year
  Sex: Female

DRUGS (1)
  1. MIRENA [Suspect]
     Indication: CONTRACEPTION
     Dosage: 20 MCG/DAY
     Dates: start: 20100520, end: 20101006

REACTIONS (3)
  - UTERINE LEIOMYOMA [None]
  - GENITAL HAEMORRHAGE [None]
  - DEVICE EXPULSION [None]
